FAERS Safety Report 18130544 (Version 2)
Quarter: 2020Q3

REPORT INFORMATION
  Report Type: Spontaneous
  Country: CH (occurrence: CH)
  Receive Date: 20200810
  Receipt Date: 20200814
  Transmission Date: 20201103
  Serious: Yes (Hospitalization, Other)
  Sender: FDA-Public Use
  Company Number: CH-BRISTOL-MYERS SQUIBB COMPANY-BMS-2020-062363

PATIENT
  Sex: Female
  Weight: 58.3 kg

DRUGS (4)
  1. OPDIVO [Suspect]
     Active Substance: NIVOLUMAB
     Dosage: 60 MILLIGRAM, CYCLICAL
     Route: 041
     Dates: start: 20200511
  2. OPDIVO [Suspect]
     Active Substance: NIVOLUMAB
     Indication: MALIGNANT MELANOMA
     Dosage: 60 MILLIGRAM, CYCLICAL
     Route: 041
     Dates: start: 20200421
  3. YERVOY [Suspect]
     Active Substance: IPILIMUMAB
     Dosage: 180 MILLIGRAM, QCYCLE
     Route: 041
     Dates: start: 20200511
  4. YERVOY [Suspect]
     Active Substance: IPILIMUMAB
     Indication: MALIGNANT MELANOMA
     Dosage: 180 MILLIGRAM, QCYCLE
     Route: 041
     Dates: start: 20200421

REACTIONS (7)
  - Prescribed overdose [Unknown]
  - Sjogren^s syndrome [Recovering/Resolving]
  - Colitis [Recovering/Resolving]
  - Sinusitis [Recovering/Resolving]
  - Myocarditis [Recovering/Resolving]
  - Hepatitis [Recovering/Resolving]
  - Myositis [Recovering/Resolving]
